FAERS Safety Report 6767500-0 (Version None)
Quarter: 2010Q2

REPORT INFORMATION
  Report Type: 
  Country: None (occurrence: None)
  Receive Date: 20100614
  Receipt Date: 20100602
  Transmission Date: 20101027
  Serious: Yes (Other)
  Sender: FDA-Public Use
  Company Number: PHHY2010MX36885

PATIENT
  Sex: Female

DRUGS (4)
  1. LAMISIL [Suspect]
     Indication: ONYCHOMYCOSIS
     Dosage: 1 TABLET DAILY
     Route: 048
     Dates: start: 20090801, end: 20090901
  2. CELEBREX [Concomitant]
     Dosage: UNK
     Dates: start: 20090901
  3. ARCOXIA [Concomitant]
     Dosage: UNK
     Dates: start: 20090901
  4. OMEPRAZOLE [Concomitant]
     Dosage: UNK
     Dates: start: 20090901

REACTIONS (2)
  - ABDOMINAL DISCOMFORT [None]
  - ANKLE FRACTURE [None]
